FAERS Safety Report 23387391 (Version 1)
Quarter: 2024Q1

REPORT INFORMATION
  Report Type: Report from Study
  Country: US (occurrence: US)
  Receive Date: 20240110
  Receipt Date: 20240110
  Transmission Date: 20240410
  Serious: Yes (Hospitalization)
  Sender: FDA-Public Use
  Company Number: US-ABBVIE-5544522

PATIENT
  Sex: Male

DRUGS (6)
  1. SKYRIZI [Suspect]
     Active Substance: RISANKIZUMAB-RZAA
     Indication: Crohn^s disease
     Route: 058
  2. SKYRIZI [Suspect]
     Active Substance: RISANKIZUMAB-RZAA
     Dosage: 360 MILLIGRAMS?WEEK 12
     Route: 058
  3. PREVALITE [Concomitant]
     Active Substance: CHOLESTYRAMINE
     Indication: Product used for unknown indication
  4. SKYRIZI [Suspect]
     Active Substance: RISANKIZUMAB-RZAA
     Indication: Crohn^s disease
     Dosage: TIME INTERVAL: TOTAL: 600 MILLIGRAM?WEEK 4?FIRST ADMIN DATE: 2023?LAST ADMIN DATE: 2023
     Route: 042
  5. SKYRIZI [Suspect]
     Active Substance: RISANKIZUMAB-RZAA
     Indication: Crohn^s disease
     Dosage: TIME INTERVAL: TOTAL: 600 MILLIGRAM?WEEK 0
     Route: 042
     Dates: start: 20230911, end: 20230911
  6. SKYRIZI [Suspect]
     Active Substance: RISANKIZUMAB-RZAA
     Indication: Crohn^s disease
     Dosage: 600 MILLIGRAM?WEEK 8?FIRST ADMIN DATE: 2023?LAST ADMIN DATE: 2023
     Route: 042

REACTIONS (10)
  - Myalgia [Recovering/Resolving]
  - Malaise [Unknown]
  - Arthralgia [Unknown]
  - Abdominal rigidity [Unknown]
  - Crohn^s disease [Unknown]
  - Asthenia [Unknown]
  - Flatulence [Unknown]
  - Muscle tightness [Unknown]
  - Neck pain [Unknown]
  - Abdominal distension [Not Recovered/Not Resolved]

NARRATIVE: CASE EVENT DATE: 20230101
